FAERS Safety Report 7190439-6 (Version None)
Quarter: 2010Q4

REPORT INFORMATION
  Report Type: 
  Country: None (occurrence: None)
  Receive Date: 20101223
  Receipt Date: 20101213
  Transmission Date: 20110411
  Serious: Yes (Other)
  Sender: FDA-Public Use
  Company Number: US-ELI_LILLY_AND_COMPANY-US201012003147

PATIENT
  Sex: Male

DRUGS (7)
  1. BYETTA [Suspect]
     Indication: TYPE 2 DIABETES MELLITUS
     Dosage: 5 UG, 2/D
     Route: 058
  2. BYETTA [Suspect]
     Dosage: 10 UG, 2/D
     Route: 058
  3. BYETTA [Suspect]
     Dosage: 5 UG, 2/D
     Route: 058
     Dates: start: 20101026, end: 20101102
  4. LOVASTATIN [Concomitant]
     Dosage: 20 MG, DAILY (1/D)
     Dates: start: 20090721
  5. GLUCOPHAGE /USA/ [Concomitant]
     Dosage: 500 MG, 2/D
     Dates: start: 20090721
  6. LANTUS [Concomitant]
     Dates: start: 20090901
  7. LISINOPRIL [Concomitant]
     Dosage: 20 MG, DAILY (1/D)
     Dates: start: 20080425

REACTIONS (3)
  - CHOLELITHIASIS [None]
  - OFF LABEL USE [None]
  - PANCREATITIS [None]
